FAERS Safety Report 5742918-3 (Version None)
Quarter: 2008Q2

REPORT INFORMATION
  Report Type: 
  Country: None (occurrence: None)
  Receive Date: 20080515
  Receipt Date: 20080515
  Transmission Date: 20081010
  Serious: Yes (Other)
  Sender: FDA-Public Use
  Company Number: None

PATIENT
  Age: 14 Year
  Sex: Female
  Weight: 68.9467 kg

DRUGS (1)
  1. BARIUM SULFATE [Suspect]
     Indication: DIAGNOSTIC PROCEDURE

REACTIONS (5)
  - CONSTIPATION [None]
  - REGURGITATION [None]
  - STOMACH DISCOMFORT [None]
  - VOMITING [None]
  - WEIGHT DECREASED [None]
